FAERS Safety Report 5963139-5 (Version None)
Quarter: 2008Q4

REPORT INFORMATION
  Report Type: 
  Country: None (occurrence: None)
  Receive Date: 20081119
  Receipt Date: 20081008
  Transmission Date: 20090506
  Serious: No
  Sender: FDA-Public Use
  Company Number: WAES 0810USA01709

PATIENT
  Age: 67 Year
  Sex: Female

DRUGS (7)
  1. JANUVIA [Suspect]
     Indication: BLOOD GLUCOSE
     Dosage: 100 MG/DAILY/PO
     Route: 048
     Dates: start: 20070813, end: 20080303
  2. BENICAR [Concomitant]
  3. LIPITOR [Concomitant]
  4. NORVASC [Concomitant]
  5. PLAVIX [Concomitant]
  6. PREVACID [Concomitant]
  7. ATENOLOL [Concomitant]

REACTIONS (1)
  - FACIAL PAIN [None]
